FAERS Safety Report 9282775 (Version 1)
Quarter: 2013Q2

REPORT INFORMATION
  Report Type: Spontaneous
  Country: US (occurrence: None)
  Receive Date: 20130509
  Receipt Date: 20130509
  Transmission Date: 20140414
  Serious: No
  Sender: FDA-Public Use
  Company Number: None

PATIENT
  Age: 65 Year
  Sex: Female
  Weight: 72.58 kg

DRUGS (1)
  1. SPIRIVA [Suspect]
     Indication: ASTHMA
     Dosage: 1 PUFF ONCE DAILY MOUTH
     Route: 048
     Dates: start: 20130205, end: 20130405

REACTIONS (9)
  - Eye pain [None]
  - Dry mouth [None]
  - Sinusitis [None]
  - Musculoskeletal disorder [None]
  - Chest pain [None]
  - Wheezing [None]
  - Vision blurred [None]
  - Urinary tract infection [None]
  - Constipation [None]
